FAERS Safety Report 19403853 (Version 1)
Quarter: 2021Q2

REPORT INFORMATION
  Report Type: Report from Study
  Country: AU (occurrence: AU)
  Receive Date: 20210611
  Receipt Date: 20210611
  Transmission Date: 20210717
  Serious: Yes (Hospitalization)
  Sender: FDA-Public Use
  Company Number: AU-QED THERAPEUTICS-2112606

PATIENT
  Age: 69 Year
  Sex: Female
  Weight: 93.8 kg

DRUGS (16)
  1. AMLODIPINE [Concomitant]
     Active Substance: AMLODIPINE BESYLATE
     Dates: start: 202010
  2. ESOMEPRAZOLE. [Concomitant]
     Active Substance: ESOMEPRAZOLE MAGNESIUM
     Dates: start: 20210225
  3. EMPAGLIFLOZIN;LINAGLIPTIN [Concomitant]
     Active Substance: EMPAGLIFLOZIN\LINAGLIPTIN
     Dates: start: 2019
  4. MAGNESIUM [Concomitant]
     Active Substance: MAGNESIUM
     Dates: start: 2002
  5. OSTEOMOL 665 PARACETAMOL [Concomitant]
     Dates: start: 2018
  6. INFIGRATINIB [Suspect]
     Active Substance: INFIGRATINIB
     Route: 048
     Dates: start: 20210414, end: 20210504
  7. GABAPENTIN. [Concomitant]
     Active Substance: GABAPENTIN
     Dates: start: 201910
  8. THYROXINE [Concomitant]
     Active Substance: LEVOTHYROXINE
     Dates: start: 2018
  9. TRUSELTIQ [Suspect]
     Active Substance: INFIGRATINIB
     Indication: CHOLANGIOCARCINOMA
     Route: 048
     Dates: start: 20210217, end: 20210406
  10. LOPERAMIDE [Concomitant]
     Active Substance: LOPERAMIDE
     Dates: start: 20210303, end: 20210327
  11. SEVELAMER [Concomitant]
     Active Substance: SEVELAMER
     Dates: start: 20210310, end: 20210401
  12. AMITRIPTYLINE HYDROCHLORIDE. [Concomitant]
     Active Substance: AMITRIPTYLINE HYDROCHLORIDE
     Dates: start: 201910
  13. APIXABAN [Concomitant]
     Active Substance: APIXABAN
     Dates: start: 2018
  14. ROSUVASTATIN. [Concomitant]
     Active Substance: ROSUVASTATIN
     Dates: start: 2018
  15. ENALAPRIL [Concomitant]
     Active Substance: ENALAPRIL
     Dates: start: 2002
  16. METFORMIN [Concomitant]
     Active Substance: METFORMIN HYDROCHLORIDE
     Dates: start: 2018

REACTIONS (2)
  - Eye pain [Recovered/Resolved]
  - Diarrhoea [Not Recovered/Not Resolved]

NARRATIVE: CASE EVENT DATE: 20210329
